FAERS Safety Report 15346623 (Version 1)
Quarter: 2018Q3

REPORT INFORMATION
  Report Type: Spontaneous
  Country: IT (occurrence: IT)
  Receive Date: 20180904
  Receipt Date: 20180904
  Transmission Date: 20181010
  Serious: Yes (Other)
  Sender: FDA-Public Use
  Company Number: IT-TEVA-2018-IT-951219

PATIENT
  Age: 33 Year
  Sex: Female

DRUGS (2)
  1. GOLAMIXIN [Suspect]
     Active Substance: BENZOCAINE\CETRIMONIUM BROMIDE\TYROTHRICIN
     Indication: TONSILLITIS
     Route: 055
     Dates: start: 20180731, end: 20180731
  2. AMOXICILLIN. [Suspect]
     Active Substance: AMOXICILLIN
     Indication: TONSILLITIS
     Route: 048
     Dates: start: 20180731, end: 20180731

REACTIONS (7)
  - Paraesthesia [Recovering/Resolving]
  - Face oedema [Recovering/Resolving]
  - Lip oedema [Recovering/Resolving]
  - Oedema peripheral [Recovering/Resolving]
  - Tongue oedema [Recovering/Resolving]
  - Dermatitis bullous [Recovering/Resolving]
  - Pruritus [Recovering/Resolving]

NARRATIVE: CASE EVENT DATE: 20180731
